FAERS Safety Report 24403025 (Version 1)
Quarter: 2024Q4

REPORT INFORMATION
  Report Type: Spontaneous
  Country: FR (occurrence: FR)
  Receive Date: 20241007
  Receipt Date: 20241007
  Transmission Date: 20250115
  Serious: Yes (Hospitalization)
  Sender: CELLTRION
  Company Number: None

PATIENT

DRUGS (7)
  1. INFLIXIMAB [Interacting]
     Active Substance: INFLIXIMAB
     Indication: Polychondritis
     Dosage: 400 MG, Q4WEEKS
     Route: 042
     Dates: start: 20230331, end: 20230728
  2. PREDNISONE [Interacting]
     Active Substance: PREDNISONE
     Indication: Polychondritis
     Dosage: 10 MG, QD
     Route: 048
     Dates: start: 20220922, end: 20230822
  3. CALCIUM\CHOLECALCIFEROL [Concomitant]
     Active Substance: CALCIUM\CHOLECALCIFEROL
     Dosage: 400 IU, QD
     Route: 048
     Dates: end: 20230822
  4. OMEPRAZOLE [Concomitant]
     Active Substance: OMEPRAZOLE
     Dosage: 10 MG, QD
     Route: 048
     Dates: end: 20230822
  5. TRULICITY [Concomitant]
     Active Substance: DULAGLUTIDE
     Dosage: 1 DF, 1/WEEK
     Route: 058
     Dates: start: 20210617, end: 20230822
  6. TAHOR [Concomitant]
     Active Substance: ATORVASTATIN CALCIUM
     Indication: Dyslipidaemia
     Dosage: 1 DF, QD
     Route: 048
     Dates: start: 20210617, end: 20230822
  7. METFORMIN HYDROCHLORIDE [Concomitant]
     Active Substance: METFORMIN HYDROCHLORIDE
     Indication: Diabetes mellitus
     Dosage: 1700 MG, QD
     Route: 048
     Dates: start: 20210617, end: 20230822

REACTIONS (3)
  - Drug interaction [Recovered/Resolved]
  - Klebsiella urinary tract infection [Recovered/Resolved]
  - Intentional product use issue [Unknown]

NARRATIVE: CASE EVENT DATE: 20230331
